FAERS Safety Report 8836264 (Version 2)
Quarter: 2012Q4

REPORT INFORMATION
  Report Type: 
  Country: JP (occurrence: JP)
  Receive Date: 20121011
  Receipt Date: 20121023
  Transmission Date: 20130627
  Serious: Yes (Hospitalization, Other)
  Sender: FDA-Public Use
  Company Number: PHHY2011JP098056

PATIENT
  Age: 35 Year
  Sex: Female

DRUGS (37)
  1. LEPONEX / CLOZARIL [Suspect]
     Indication: SCHIZOPHRENIA, PARANOID TYPE
     Dosage: 12.5 mg, daily
     Route: 048
     Dates: start: 20110726, end: 20110726
  2. LEPONEX / CLOZARIL [Suspect]
     Dosage: 25 mg, daily
     Route: 048
     Dates: start: 20110727, end: 20110727
  3. LEPONEX / CLOZARIL [Suspect]
     Dosage: 50 mg, daily
     Route: 048
     Dates: start: 20110728, end: 20110801
  4. LEPONEX / CLOZARIL [Suspect]
     Dosage: 100 mg, daily
     Route: 048
     Dates: start: 20110802, end: 20110803
  5. LEPONEX / CLOZARIL [Suspect]
     Dosage: 125 mg, daily
     Route: 048
     Dates: start: 20110804, end: 20110808
  6. LEPONEX / CLOZARIL [Suspect]
     Dosage: 150 mg, daily
     Route: 048
     Dates: start: 20110809, end: 20110810
  7. LEPONEX / CLOZARIL [Suspect]
     Dosage: 175 mg, daily
     Route: 048
     Dates: start: 20110811, end: 20110815
  8. LEPONEX / CLOZARIL [Suspect]
     Dosage: 200 mg, daily
     Route: 048
     Dates: start: 20110816, end: 20110817
  9. LEPONEX / CLOZARIL [Suspect]
     Dosage: 300 mg, daily
     Route: 048
     Dates: start: 20110818, end: 20110821
  10. LEPONEX / CLOZARIL [Suspect]
     Dosage: 400 mg, daily
     Route: 048
     Dates: start: 20110822, end: 20110825
  11. LEPONEX / CLOZARIL [Suspect]
     Dosage: 500 mg, daily
     Route: 048
     Dates: start: 20110826, end: 20110829
  12. LEPONEX / CLOZARIL [Suspect]
     Dosage: 600 mg, daily
     Route: 048
     Dates: start: 20110830, end: 20111114
  13. LEPONEX / CLOZARIL [Suspect]
     Dosage: 500 mg, daily
     Route: 048
     Dates: start: 20111115, end: 20111128
  14. LEPONEX / CLOZARIL [Suspect]
     Dosage: 600 mg, daily
     Route: 048
     Dates: start: 20111129
  15. PURSENNID [Suspect]
     Indication: CONSTIPATION PROPHYLAXIS
     Dosage: 24 mg, UNK
     Route: 048
     Dates: start: 20110726, end: 20111006
  16. PURSENNID [Suspect]
     Dosage: 36 mg, UNK
     Route: 048
     Dates: start: 20111007, end: 20111013
  17. PURSENNID [Suspect]
     Dosage: 48 mg, UNK
     Route: 048
     Dates: start: 20111014
  18. VEGETAMIN A [Concomitant]
     Indication: INSOMNIA
     Dosage: 1 DF, UNK
     Route: 048
     Dates: start: 20110726, end: 20110801
  19. CHLORPROMAZINE [Concomitant]
     Dosage: 25 mg, UNK
     Route: 048
     Dates: start: 20110726, end: 20110801
  20. LEVOMEPROMAZINE MALEATE [Concomitant]
     Dosage: 50 mg, UNK
     Route: 048
     Dates: start: 20110726
  21. LEVOMEPROMAZINE MALEATE [Concomitant]
     Dosage: 25 mg, UNK
     Route: 048
  22. LEVOMEPROMAZINE MALEATE [Concomitant]
     Dosage: 50 mg, UNK
     Route: 048
  23. HALOPERIDOL [Concomitant]
     Dosage: 6.6 mg, UNK
     Route: 048
     Dates: start: 20110726
  24. HALOPERIDOL [Concomitant]
     Dosage: 3.3 mg, UNK
     Route: 048
  25. HALOPERIDOL [Concomitant]
     Dosage: 6.6 mg, UNK
     Route: 048
  26. RISPERDAL [Concomitant]
     Dosage: 12 mg, UNK
     Route: 048
     Dates: start: 20110726
  27. RISPERDAL [Concomitant]
     Dosage: 6 mg, UNK
     Route: 048
  28. RISPERDAL [Concomitant]
     Dosage: 12 mg, UNK
     Route: 048
  29. OLANZAPINE [Concomitant]
     Dosage: 20 mg, UNK
     Route: 048
     Dates: start: 20110726
  30. OLANZAPINE [Concomitant]
     Dosage: 10 mg, UNK
     Route: 048
  31. OLANZAPINE [Concomitant]
     Dosage: 20 mg, UNK
     Route: 048
  32. MAGLAX [Concomitant]
     Dosage: 1000 mg, UNK
     Route: 048
     Dates: start: 20110726
  33. MAGLAX [Concomitant]
     Dosage: 1500 mg, UNK
     Route: 048
  34. DEPAKENE-R [Concomitant]
     Indication: SCHIZOPHRENIA, PARANOID TYPE
     Dosage: 800 mg, UNK
     Route: 048
     Dates: start: 20120306
  35. LITHIUM CARBONATE [Concomitant]
     Indication: WHITE BLOOD CELL COUNT DECREASED
     Dosage: 800 mg, UNK
     Route: 048
  36. SENNOSIDE [Concomitant]
     Indication: ILEUS
     Dosage: 48 mg, UNK
     Route: 048
     Dates: start: 20120306
  37. PANTOSIN [Concomitant]
     Indication: ILEUS
     Dosage: 600 mg, UNK
     Route: 048
     Dates: start: 20120306

REACTIONS (6)
  - Convulsion [Recovered/Resolved]
  - Loss of consciousness [Unknown]
  - Heart rate increased [Unknown]
  - Fall [Unknown]
  - Constipation [Not Recovered/Not Resolved]
  - Drug ineffective [Unknown]
